FAERS Safety Report 18648406 (Version 3)
Quarter: 2021Q2

REPORT INFORMATION
  Report Type: Spontaneous
  Country: PR (occurrence: PR)
  Receive Date: 20201222
  Receipt Date: 20210611
  Transmission Date: 20210717
  Serious: No
  Sender: FDA-Public Use
  Company Number: PR-PFIZER INC-2020494721

PATIENT
  Age: 15 Year
  Sex: Male
  Weight: 61.23 kg

DRUGS (1)
  1. GENOTROPIN [Suspect]
     Active Substance: SOMATROPIN
     Indication: GROWTH DISORDER
     Dosage: 2.6 MG, 1X/DAY
     Dates: start: 2016

REACTIONS (4)
  - Device breakage [Unknown]
  - Device information output issue [Unknown]
  - Device use issue [Unknown]
  - Poor quality device used [Unknown]
